FAERS Safety Report 7281264-6 (Version None)
Quarter: 2011Q1

REPORT INFORMATION
  Report Type: 
  Country: None (occurrence: None)
  Receive Date: 20110208
  Receipt Date: 20110131
  Transmission Date: 20110831
  Serious: Yes (Death)
  Sender: FDA-Public Use
  Company Number: CHPA2011US02081

PATIENT
  Age: 56 Year
  Sex: Female

DRUGS (8)
  1. ESOMEPRAZOLE [Concomitant]
  2. ACETAMINOPHEN [Suspect]
     Dosage: 2 G, Q6H
     Route: 048
  3. MONTELUKAST SODIUM [Concomitant]
  4. CARISOPRODOL [Concomitant]
  5. DIAZEPAM [Concomitant]
  6. PHENAZOPYRIDINE HCL TAB [Concomitant]
  7. METHADONE HYDROCHLORIDE [Concomitant]
  8. GEMFIBROZIL [Concomitant]

REACTIONS (13)
  - LETHARGY [None]
  - INTERNATIONAL NORMALISED RATIO INCREASED [None]
  - BLOOD BILIRUBIN INCREASED [None]
  - BLOOD POTASSIUM DECREASED [None]
  - METABOLIC ACIDOSIS [None]
  - SEPSIS [None]
  - INTENTIONAL DRUG MISUSE [None]
  - ASPARTATE AMINOTRANSFERASE INCREASED [None]
  - BLOOD SODIUM DECREASED [None]
  - BLOOD CHLORIDE DECREASED [None]
  - ALANINE AMINOTRANSFERASE INCREASED [None]
  - BLOOD UREA DECREASED [None]
  - DEPRESSED LEVEL OF CONSCIOUSNESS [None]
